FAERS Safety Report 6855048-4 (Version None)
Quarter: 2010Q3

REPORT INFORMATION
  Report Type: 
  Country: None (occurrence: None)
  Receive Date: 20100717
  Receipt Date: 20080923
  Transmission Date: 20110219
  Serious: Yes (Other)
  Sender: FDA-Public Use
  Company Number: US-PFIZER INC-2007106707

PATIENT
  Sex: Male
  Weight: 97 kg

DRUGS (5)
  1. CHANTIX [Suspect]
     Indication: SMOKING CESSATION THERAPY
     Route: 048
     Dates: start: 20071117
  2. CHANTIX [Suspect]
     Indication: TOBACCO ABUSE
  3. INSULIN [Concomitant]
     Indication: DIABETES MELLITUS
  4. INDERAL [Concomitant]
     Indication: CARDIAC DISORDER
     Route: 048
  5. PLAVIX [Concomitant]
     Indication: CARDIAC DISORDER
     Route: 048

REACTIONS (1)
  - BLOOD GLUCOSE INCREASED [None]
